FAERS Safety Report 7354205-0 (Version None)
Quarter: 2011Q1

REPORT INFORMATION
  Report Type: 
  Country: None (occurrence: None)
  Receive Date: 20110316
  Receipt Date: 20110308
  Transmission Date: 20110831
  Serious: No
  Sender: FDA-Public Use
  Company Number: US-BIOGENIDEC-2010BI020815

PATIENT
  Sex: Female

DRUGS (2)
  1. BENADRYL [Concomitant]
     Indication: PREMEDICATION
  2. TYSABRI [Suspect]
     Indication: MULTIPLE SCLEROSIS
     Route: 042
     Dates: start: 20091218

REACTIONS (6)
  - ASTHENIA [None]
  - RASH [None]
  - DIPLOPIA [None]
  - MEMORY IMPAIRMENT [None]
  - INTELLIGENCE TEST ABNORMAL [None]
  - HEADACHE [None]
